FAERS Safety Report 5019384-9 (Version None)
Quarter: 2006Q2

REPORT INFORMATION
  Report Type: 
  Country: None (occurrence: None)
  Receive Date: 20060531
  Receipt Date: 20060523
  Transmission Date: 20061013
  Serious: Yes (Hospitalization)
  Sender: FDA-Public Use
  Company Number: 200610625BNE

PATIENT
  Age: 3 Year
  Sex: Male

DRUGS (3)
  1. CIPROFLOXACIN [Suspect]
     Indication: DISEASE RECURRENCE
     Dosage: 105MG, BID,
     Dates: start: 20051001
  2. CIPROFLOXACIN [Suspect]
     Indication: LIVER ABSCESS
     Dosage: 105MG, BID,
     Dates: start: 20051001
  3. CLINDAMYCIN [Concomitant]

REACTIONS (1)
  - HALLUCINATION [None]
